FAERS Safety Report 4346765-9 (Version None)
Quarter: 2004Q1

REPORT INFORMATION
  Report Type: 
  Country: None (occurrence: None)
  Receive Date: 20040325
  Receipt Date: 20040224
  Transmission Date: 20041129
  Serious: No
  Sender: FDA-Public Use
  Company Number: USA030640430

PATIENT
  Age: 74 Year
  Sex: Female
  Weight: 55 kg

DRUGS (8)
  1. FORTEO [Suspect]
     Indication: OSTEOPOROSIS
     Dates: start: 20030617
  2. PERCOCET [Concomitant]
  3. OXYCONTIN [Concomitant]
  4. PRILOSEC [Concomitant]
  5. PAXIL [Concomitant]
  6. TRIAMTERENE AND HYDROCHLOROTHIAZIDE [Concomitant]
  7. DICYCLOMINE HYDROCHLORIDE [Concomitant]
  8. ATIVAN [Concomitant]

REACTIONS (13)
  - ANOREXIA [None]
  - ASTHENIA [None]
  - DIZZINESS [None]
  - FEELING ABNORMAL [None]
  - FEELING COLD [None]
  - HYPOTHYROIDISM [None]
  - INSOMNIA [None]
  - JOINT SWELLING [None]
  - NAUSEA [None]
  - PAIN [None]
  - VISUAL ACUITY REDUCED [None]
  - VOMITING [None]
  - WEIGHT DECREASED [None]
